FAERS Safety Report 24627135 (Version 1)
Quarter: 2024Q4

REPORT INFORMATION
  Report Type: Report from Study
  Country: US (occurrence: US)
  Receive Date: 20241116
  Receipt Date: 20241116
  Transmission Date: 20250115
  Serious: Yes (Hospitalization, Other)
  Sender: ALEXION PHARMACEUTICALS
  Company Number: US-ASTRAZENECA-202411USA005484US

PATIENT
  Age: 48 Year

DRUGS (10)
  1. OLAPARIB [Suspect]
     Active Substance: OLAPARIB
     Indication: Pancreatic carcinoma
     Dosage: 150 MILLIGRAM, BID
  2. OLAPARIB [Suspect]
     Active Substance: OLAPARIB
     Dosage: 150 MILLIGRAM, BID
  3. OLAPARIB [Suspect]
     Active Substance: OLAPARIB
     Dosage: 150 MILLIGRAM, BID
  4. OLAPARIB [Suspect]
     Active Substance: OLAPARIB
     Dosage: 150 MILLIGRAM, BID
  5. OLAPARIB [Suspect]
     Active Substance: OLAPARIB
     Dosage: 100 MILLIGRAM, BID
  6. OLAPARIB [Suspect]
     Active Substance: OLAPARIB
     Dosage: 100 MILLIGRAM, BID
  7. OLAPARIB [Suspect]
     Active Substance: OLAPARIB
     Dosage: 100 MILLIGRAM, BID
  8. OLAPARIB [Suspect]
     Active Substance: OLAPARIB
     Dosage: 100 MILLIGRAM, BID
  9. UNSPECIFIED INGREDIENT [Concomitant]
     Active Substance: UNSPECIFIED INGREDIENT
  10. UNSPECIFIED INGREDIENT [Concomitant]
     Active Substance: UNSPECIFIED INGREDIENT

REACTIONS (4)
  - Cancer pain [Unknown]
  - Sepsis [Unknown]
  - Gallbladder disorder [Unknown]
  - Drug ineffective [Unknown]
